FAERS Safety Report 7980391-5 (Version None)
Quarter: 2011Q4

REPORT INFORMATION
  Report Type: 
  Country: None (occurrence: None)
  Receive Date: 20111214
  Receipt Date: 20111202
  Transmission Date: 20120403
  Serious: Yes (Life-Threatening, Hospitalization)
  Sender: FDA-Public Use
  Company Number: FR-PFIZER INC-K201100407

PATIENT
  Age: 53 Year
  Sex: Female

DRUGS (2)
  1. CONJUGATED ESTROGENS [Concomitant]
     Dosage: UNK
  2. RAMIPRIL [Suspect]
     Indication: HYPERTENSION
     Dosage: 5 MG, 1X/DAY
     Route: 048
     Dates: start: 20100501, end: 20110213

REACTIONS (2)
  - LARYNGEAL OEDEMA [None]
  - ANAPHYLACTIC SHOCK [None]
